FAERS Safety Report 21982279 (Version 1)
Quarter: 2023Q1

REPORT INFORMATION
  Report Type: Spontaneous
  Country: ES (occurrence: ES)
  Receive Date: 20230213
  Receipt Date: 20230213
  Transmission Date: 20230418
  Serious: Yes (Other)
  Sender: FDA-Public Use
  Company Number: None

PATIENT

DRUGS (8)
  1. NUCYNTA ER [Suspect]
     Active Substance: TAPENTADOL HYDROCHLORIDE
     Indication: Spinal osteoarthritis
     Dosage: 50 MILLIGRAM, EVERY 12 HRS
     Route: 048
     Dates: start: 20230112
  2. PALEXIA [Suspect]
     Active Substance: TAPENTADOL HYDROCHLORIDE
     Indication: Spinal osteoarthritis
     Dosage: 50 MILLIGRAM, BID
     Route: 048
     Dates: start: 20230112
  3. IBIS [BILASTINE] [Concomitant]
     Indication: Hypersensitivity
     Dosage: 20 MILLIGRAM, 1/DAY
     Route: 065
     Dates: start: 20200627
  4. CALCIFEDIOL [Concomitant]
     Active Substance: CALCIFEDIOL
     Indication: Vitamin D deficiency
     Dosage: 0.266 MILLIGRAM, UNKNOWN
     Route: 065
     Dates: start: 20220224
  5. SERC (BETAHISTINE HYDROCHLORIDE) [Concomitant]
     Active Substance: BETAHISTINE HYDROCHLORIDE
     Indication: Vertigo
     Dosage: 16 MILLIGRAM, UNKNOWN
     Route: 065
     Dates: start: 20200129
  6. PARACETAMOL KERN PHARMA [Concomitant]
     Indication: Product used for unknown indication
     Dosage: 1 GRAM, QD (1/DAY)
     Route: 065
     Dates: start: 20221028
  7. NOLOTIL [DEXTROPROPOXYPHENE;METAMIZOLE MAGNESIUM] [Concomitant]
     Indication: Product used for unknown indication
     Dosage: 575 MILLIGRAM, BID (EVERY 12 HRS)
     Route: 065
     Dates: start: 20221027
  8. HIDROFEROL CHOQUE [Concomitant]
     Indication: Vitamin D deficiency
     Dosage: 180000 INTERNATIONAL UNIT, UNKNOWN
     Route: 065
     Dates: start: 20230113, end: 20230113

REACTIONS (3)
  - Tachycardia [Recovered/Resolved]
  - Malaise [Recovered/Resolved]
  - Nausea [Recovered/Resolved]

NARRATIVE: CASE EVENT DATE: 20230114
